FAERS Safety Report 4712991-X (Version None)
Quarter: 2005Q3

REPORT INFORMATION
  Report Type: 
  Country: None (occurrence: None)
  Receive Date: 20050711
  Receipt Date: 20050518
  Transmission Date: 20060218
  Serious: Yes (Other)
  Sender: FDA-Public Use
  Company Number: ENTC2005-0139

PATIENT
  Age: 79 Year
  Sex: Female

DRUGS (7)
  1. STALEVO 100 [Suspect]
     Indication: PARKINSON'S DISEASE
     Dosage: 100/25/200 MG TID ORAL
     Route: 048
     Dates: start: 20041015, end: 20050421
  2. FLECAINIDE ACETATE [Suspect]
     Indication: ARRHYTHMIA
     Dosage: 50 MG ORAL
     Route: 048
     Dates: start: 19990101, end: 20050401
  3. CELANCE [Suspect]
     Indication: PARKINSON'S DISEASE
     Dosage: 0.75 MG (0.25 MG, 3 IN 1 D) ORAL
     Route: 048
     Dates: start: 20030201, end: 20050501
  4. NOOTROPYL [Concomitant]
  5. COMBIVENT [Concomitant]
  6. LORAZEPAM [Concomitant]
  7. DAFALGAN [Concomitant]

REACTIONS (12)
  - ATRIOVENTRICULAR BLOCK [None]
  - BLOOD PRESSURE FLUCTUATION [None]
  - BUNDLE BRANCH BLOCK RIGHT [None]
  - CARDIAC FAILURE [None]
  - CARDIOMEGALY [None]
  - CARDIOMYOPATHY [None]
  - CONDUCTION DISORDER [None]
  - FATIGUE [None]
  - HEART RATE DECREASED [None]
  - MITRAL VALVE INCOMPETENCE [None]
  - SYSTOLIC HYPERTENSION [None]
  - VENTRICULAR HYPOKINESIA [None]
